FAERS Safety Report 14287525 (Version 8)
Quarter: 2018Q4

REPORT INFORMATION
  Report Type: Spontaneous
  Country: US (occurrence: US)
  Receive Date: 20171214
  Receipt Date: 20181202
  Transmission Date: 20190204
  Serious: Yes (Hospitalization, Other)
  Sender: FDA-Public Use
  Company Number: US-BRISTOL-MYERS SQUIBB COMPANY-BMS-2017-110022

PATIENT
  Age: 36 Year
  Sex: Female

DRUGS (1)
  1. ORENCIA [Suspect]
     Active Substance: ABATACEPT
     Indication: RHEUMATOID ARTHRITIS
     Dosage: 125 MG, QWK
     Route: 058
     Dates: start: 201709

REACTIONS (10)
  - Urinary tract infection [Unknown]
  - Cardiac disorder [Unknown]
  - Gastric disorder [Unknown]
  - Hospitalisation [Unknown]
  - Dyspnoea [Unknown]
  - Heart rate increased [Unknown]
  - Off label use [Unknown]
  - Drug ineffective [Unknown]
  - Hypotension [Unknown]
  - Nasopharyngitis [Unknown]

NARRATIVE: CASE EVENT DATE: 201807
